FAERS Safety Report 9061723 (Version 1)
Quarter: 2013Q1

REPORT INFORMATION
  Report Type: Spontaneous
  Country: CN (occurrence: CN)
  Receive Date: 20130204
  Receipt Date: 20130204
  Transmission Date: 20140127
  Serious: Yes (Other)
  Sender: FDA-Public Use
  Company Number: CN-BRISTOL-MYERS SQUIBB COMPANY-17317272

PATIENT
  Age: 82 Year
  Sex: Female
  Weight: 78 kg

DRUGS (4)
  1. ONGLYZA TABS [Suspect]
     Indication: TYPE 2 DIABETES MELLITUS
     Route: 048
     Dates: start: 20130122, end: 20130124
  2. INSULIN [Concomitant]
     Indication: DIABETES MELLITUS
  3. ZOCOR [Concomitant]
     Route: 048
     Dates: start: 20120718
  4. GLUCOPHAGE [Concomitant]
     Route: 048
     Dates: start: 20120722

REACTIONS (1)
  - Blood creatine phosphokinase increased [Recovering/Resolving]
